FAERS Safety Report 4402122-8 (Version None)
Quarter: 2004Q3

REPORT INFORMATION
  Report Type: 
  Country: None (occurrence: None)
  Receive Date: 20040719
  Receipt Date: 20040719
  Transmission Date: 20050211
  Serious: Yes (Other)
  Sender: FDA-Public Use
  Company Number: None

PATIENT
  Age: 37 Year
  Sex: Female
  Weight: 46.7205 kg

DRUGS (1)
  1. DEFEROVAMINE MESYLATE 500MG/VIAL ABBOT LABS [Suspect]
     Indication: BLOOD IRON INCREASED
     Dosage: 2 GM SQ 5X WEEKLY/ AROUND 3 WEEKS

REACTIONS (5)
  - INJECTION SITE ERYTHEMA [None]
  - INJECTION SITE NODULE [None]
  - INJECTION SITE PAIN [None]
  - INJECTION SITE URTICARIA [None]
  - MYALGIA [None]
